FAERS Safety Report 7977387-6 (Version None)
Quarter: 2011Q4

REPORT INFORMATION
  Report Type: 
  Country: None (occurrence: None)
  Receive Date: 20111213
  Receipt Date: 20111124
  Transmission Date: 20120403
  Serious: Yes (Hospitalization, Other)
  Sender: FDA-Public Use
  Company Number: PHHY2011BR95754

PATIENT
  Age: 92 Year
  Sex: Female

DRUGS (3)
  1. PANTOPRAZOLE [Concomitant]
     Indication: ABDOMINAL DISCOMFORT
     Dosage: 40 MG, UNK
  2. DIOVAN HCT [Suspect]
     Indication: HYPERTENSION
     Dosage: 1 DF (160/12.5 MG), DAILY
  3. SUSTRATE [Concomitant]
     Indication: CARDIAC DISORDER
     Dosage: 2 DF, UNK

REACTIONS (6)
  - OEDEMA PERIPHERAL [None]
  - RESPIRATORY FAILURE [None]
  - DYSPNOEA [None]
  - POOR PERIPHERAL CIRCULATION [None]
  - ERYSIPELAS [None]
  - ABDOMINAL PAIN [None]
